FAERS Safety Report 9319474 (Version 1)
Quarter: 2013Q2

REPORT INFORMATION
  Report Type: Spontaneous
  Country: US (occurrence: US)
  Receive Date: 20130530
  Receipt Date: 20130530
  Transmission Date: 20140414
  Serious: No
  Sender: FDA-Public Use
  Company Number: US-GLAXOSMITHKLINE-A0988691A

PATIENT
  Age: 47 Year
  Sex: Male

DRUGS (1)
  1. FLOLAN [Suspect]
     Dosage: 23NGKM CONTINUOUS
     Route: 065
     Dates: start: 19990927

REACTIONS (3)
  - Arthralgia [Unknown]
  - Musculoskeletal pain [Unknown]
  - Pain in jaw [Unknown]
